FAERS Safety Report 8979099 (Version 1)
Quarter: 2012Q4

REPORT INFORMATION
  Report Type: 
  Country: US (occurrence: US)
  Receive Date: 20121221
  Receipt Date: 20121221
  Transmission Date: 20130627
  Serious: Yes (Hospitalization)
  Sender: FDA-Public Use
  Company Number: US-GLAXOSMITHKLINE-A0818033A

PATIENT
  Age: 46 Year
  Sex: Male

DRUGS (1)
  1. AVANDIA [Suspect]
     Indication: DIABETES MELLITUS
     Route: 048
     Dates: end: 2006

REACTIONS (9)
  - Coronary artery bypass [Not Recovered/Not Resolved]
  - Retinopathy [Unknown]
  - Renal injury [Unknown]
  - Neuropathy peripheral [Unknown]
  - Weight increased [Unknown]
  - Cardiac disorder [Unknown]
  - Diabetes mellitus inadequate control [Unknown]
  - Myocardial infarction [Unknown]
  - Cardiac failure congestive [Unknown]
